FAERS Safety Report 12847478 (Version 2)
Quarter: 2017Q1

REPORT INFORMATION
  Report Type: Spontaneous
  Country: PE (occurrence: PE)
  Receive Date: 20161014
  Receipt Date: 20170104
  Transmission Date: 20170428
  Serious: Yes (Other)
  Sender: FDA-Public Use
  Company Number: PE-PFIZER INC-2016473639

PATIENT
  Age: 89 Year
  Sex: Female

DRUGS (1)
  1. XALATAN [Suspect]
     Active Substance: LATANOPROST
     Indication: OCULAR HYPERTENSION
     Dosage: 1 GTT, DAILY
     Route: 047
     Dates: start: 2014

REACTIONS (3)
  - Eye disorder [Not Recovered/Not Resolved]
  - Parkinson^s disease [Unknown]
  - Nervousness [Unknown]
